FAERS Safety Report 5142737-5 (Version None)
Quarter: 2006Q4

REPORT INFORMATION
  Report Type: 
  Country: None (occurrence: None)
  Receive Date: 20061027
  Receipt Date: 20060918
  Transmission Date: 20070319
  Serious: Yes (Other)
  Sender: FDA-Public Use
  Company Number: 2006SP002211

PATIENT
  Age: 32 Year
  Sex: Male

DRUGS (1)
  1. CLARITYN-D [Suspect]
     Indication: NASOPHARYNGITIS
     Dosage: 5 MG;QD;PO
     Route: 048
     Dates: start: 20060910

REACTIONS (3)
  - GENERALISED ERYTHEMA [None]
  - PAIN IN EXTREMITY [None]
  - PYREXIA [None]
